FAERS Safety Report 18786158 (Version 2)
Quarter: 2021Q1

REPORT INFORMATION
  Report Type: Report from Study
  Country: CA (occurrence: CA)
  Receive Date: 20210125
  Receipt Date: 20210201
  Transmission Date: 20210419
  Serious: Yes (Other)
  Sender: FDA-Public Use
  Company Number: CA-HLS-202106885

PATIENT
  Sex: Male

DRUGS (1)
  1. CLOZARIL [Suspect]
     Active Substance: CLOZAPINE
     Indication: SCHIZOPHRENIA
     Dosage: 175 MG MORNING AND 350 MG AT BEDTIME
     Route: 048
     Dates: start: 20120214

REACTIONS (1)
  - SARS-CoV-2 test positive [Recovered/Resolved]
